FAERS Safety Report 6449788-9 (Version None)
Quarter: 2009Q4

REPORT INFORMATION
  Report Type: 
  Country: None (occurrence: None)
  Receive Date: 20091120
  Receipt Date: 20091117
  Transmission Date: 20100525
  Serious: Yes (Other)
  Sender: FDA-Public Use
  Company Number: US-GENENTECH-293601

PATIENT
  Sex: Female
  Weight: 72 kg

DRUGS (4)
  1. XOLAIR [Suspect]
     Indication: ASTHMA
     Dosage: 375 MG, Q2W
     Route: 058
     Dates: start: 20060606, end: 20091023
  2. PULMICORT [Concomitant]
     Indication: ASTHMA
     Dosage: 1 PUFF, BID
  3. PROVENTIL-HFA [Concomitant]
     Indication: ASTHMA
     Dosage: 2 PUFF, UNK
  4. BIRTH CONTROL PILL (UNK INGREDIENTS) [Concomitant]
     Indication: DRUG USE FOR UNKNOWN INDICATION

REACTIONS (3)
  - DYSPNOEA [None]
  - URTICARIA [None]
  - WHEEZING [None]
